FAERS Safety Report 8922141 (Version 1)
Quarter: 2012Q4

REPORT INFORMATION
  Report Type: 
  Country: FR (occurrence: FR)
  Receive Date: 20121123
  Receipt Date: 20121123
  Transmission Date: 20130627
  Serious: Yes (Life-Threatening, Other)
  Sender: FDA-Public Use
  Company Number: FR-009507513-1211FRA006853

PATIENT
  Age: 69 Year
  Sex: Male

DRUGS (3)
  1. ESMERON [Suspect]
     Indication: INDUCTION OF ANAESTHESIA
     Dosage: 80 mg, Once
     Route: 040
     Dates: start: 20120810, end: 20120810
  2. SUFENTANIL [Suspect]
     Indication: INDUCTION OF ANAESTHESIA
     Dosage: 30 Microgram, Once
     Route: 040
     Dates: start: 20120810, end: 20120810
  3. PROPOFOL [Suspect]
     Indication: INDUCTION OF ANAESTHESIA
     Dosage: 300 mg, Once
     Route: 040
     Dates: start: 20120810, end: 20120810

REACTIONS (4)
  - Anaphylactoid shock [Recovered/Resolved]
  - Rash [Recovered/Resolved]
  - Cardio-respiratory arrest [Recovered/Resolved]
  - Hypothermia [Recovered/Resolved]
